FAERS Safety Report 21573479 (Version 1)
Quarter: 2022Q4

REPORT INFORMATION
  Report Type: Spontaneous
  Country: US (occurrence: US)
  Receive Date: 20221109
  Receipt Date: 20221109
  Transmission Date: 20230113
  Serious: No
  Sender: FDA-Public Use
  Company Number: US-SA-SAC20221102001543

PATIENT
  Age: 51 Year
  Sex: Male

DRUGS (5)
  1. DUPIXENT [Suspect]
     Active Substance: DUPILUMAB
     Indication: Dermatitis
     Dosage: 600 MG, 1X
     Route: 058
     Dates: start: 20221025, end: 20221025
  2. CLONIDINE [Concomitant]
     Active Substance: CLONIDINE
  3. DULOXETINE [Concomitant]
     Active Substance: DULOXETINE
  4. ENALAPRIL [Concomitant]
     Active Substance: ENALAPRIL
  5. HYDROCODONE [Concomitant]
     Active Substance: HYDROCODONE

REACTIONS (1)
  - Product use in unapproved indication [Unknown]

NARRATIVE: CASE EVENT DATE: 20221025
